FAERS Safety Report 16721203 (Version 1)
Quarter: 2019Q3

REPORT INFORMATION
  Report Type: Spontaneous
  Country: IT (occurrence: IT)
  Receive Date: 20190820
  Receipt Date: 20190820
  Transmission Date: 20191005
  Serious: Yes (Hospitalization)
  Sender: FDA-Public Use
  Company Number: IT-ALLERGAN-1933785US

PATIENT
  Sex: Male

DRUGS (4)
  1. CIPROFLOXACINE KABI [Suspect]
     Active Substance: CIPROFLOXACIN
     Indication: PSEUDOMONAS INFECTION
     Dosage: 400 MG, QD
     Route: 042
     Dates: start: 20190503, end: 20190510
  2. AZTREONAM. [Suspect]
     Active Substance: AZTREONAM
     Indication: PSEUDOMONAS INFECTION
     Dosage: 2 G, QD
     Route: 042
     Dates: start: 20190510, end: 20190608
  3. CEFTAZIDIME;AVIBACTAM - BP [Suspect]
     Active Substance: AVIBACTAM SODIUM\CEFTAZIDIME
     Indication: PSEUDOMONAS INFECTION
     Dosage: 2.5 MG, QD
     Route: 042
     Dates: start: 20190503, end: 20190510
  4. IMIPENEM [Concomitant]
     Active Substance: IMIPENEM
     Indication: PSEUDOMONAS INFECTION
     Dosage: 500 MG
     Route: 065

REACTIONS (1)
  - Pathogen resistance [Recovered/Resolved]

NARRATIVE: CASE EVENT DATE: 20190510
